FAERS Safety Report 14606103 (Version 5)
Quarter: 2019Q1

REPORT INFORMATION
  Report Type: Report from Study
  Country: None (occurrence: CA)
  Receive Date: 20180307
  Receipt Date: 20190123
  Transmission Date: 20190417
  Serious: Yes (Hospitalization, Other)
  Sender: FDA-Public Use
  Company Number: CA-ABBVIE-18K-028-2273989-00

PATIENT
  Sex: Male

DRUGS (2)
  1. HUMIRA [Suspect]
     Active Substance: ADALIMUMAB
     Route: 058
     Dates: start: 2018
  2. HUMIRA [Suspect]
     Active Substance: ADALIMUMAB
     Indication: CROHN^S DISEASE
     Route: 058
     Dates: start: 20160422, end: 2018

REACTIONS (11)
  - Abdominal adhesions [Recovering/Resolving]
  - Feeling abnormal [Not Recovered/Not Resolved]
  - Gastrointestinal stenosis [Not Recovered/Not Resolved]
  - Stenosis [Unknown]
  - Nausea [Unknown]
  - Intestinal resection [Unknown]
  - Clostridium difficile infection [Recovered/Resolved]
  - Wound dehiscence [Unknown]
  - Diarrhoea [Unknown]
  - Gastrointestinal obstruction [Recovering/Resolving]
  - Crohn^s disease [Recovered/Resolved]

NARRATIVE: CASE EVENT DATE: 2018
